FAERS Safety Report 6929641-4 (Version None)
Quarter: 2010Q3

REPORT INFORMATION
  Report Type: 
  Country: None (occurrence: None)
  Receive Date: 20100818
  Receipt Date: 20100805
  Transmission Date: 20110219
  Serious: Yes (Hospitalization)
  Sender: FDA-Public Use
  Company Number: SG-BAYER-201034531GPV

PATIENT
  Sex: Male
  Weight: 58 kg

DRUGS (12)
  1. SORAFENIB [Suspect]
     Indication: HEPATIC NEOPLASM MALIGNANT
     Dosage: TOTAL DAILY DOSE: 800 MG  UNIT DOSE: 200 MG
     Route: 048
     Dates: start: 20100716, end: 20100719
  2. ERLOTINIB OR PLACEBO [Suspect]
     Indication: HEPATIC NEOPLASM MALIGNANT
     Dosage: AS USED: 150 MG
     Route: 048
     Dates: start: 20100716, end: 20100719
  3. ACETAMINOPHEN [Concomitant]
     Route: 048
     Dates: start: 20100730, end: 20100730
  4. FAMOTIDINE [Concomitant]
     Indication: ABDOMINAL DISCOMFORT
     Route: 048
     Dates: start: 20100730
  5. 20% ALBUMIN [Concomitant]
     Indication: BLOOD ALBUMIN DECREASED
     Route: 042
     Dates: start: 20100803
  6. LAMIVUDINE [Concomitant]
     Indication: HEPATITIS
     Route: 048
     Dates: start: 20100702
  7. CLEXANE [Concomitant]
     Indication: HEPATIC VEIN THROMBOSIS
     Route: 058
     Dates: start: 20100713, end: 20100802
  8. FRUSEMIDE [Concomitant]
     Indication: ASCITES
     Route: 048
     Dates: start: 20100530, end: 20100726
  9. FRUSEMIDE [Concomitant]
     Route: 048
     Dates: start: 20100727, end: 20100802
  10. ALDACTONE [Concomitant]
     Indication: ASCITES
     Route: 048
     Dates: start: 20100530, end: 20100726
  11. ALDACTONE [Concomitant]
     Route: 048
     Dates: start: 20100804
  12. ALDACTONE [Concomitant]
     Route: 048
     Dates: start: 20100727, end: 20100802

REACTIONS (1)
  - ASCITES [None]
